FAERS Safety Report 7319863-5 (Version None)
Quarter: 2011Q1

REPORT INFORMATION
  Report Type: 
  Country: None (occurrence: None)
  Receive Date: 20110228
  Receipt Date: 20101026
  Transmission Date: 20110831
  Serious: No
  Sender: FDA-Public Use
  Company Number: A0889986A

PATIENT
  Age: 6 Year
  Sex: Male

DRUGS (2)
  1. DIAZEPAM [Concomitant]
     Route: 054
  2. LAMOTRIGINE [Suspect]
     Indication: EPILEPSY
     Dosage: 2.5ML TWICE PER DAY
     Route: 048
     Dates: start: 20101015

REACTIONS (1)
  - FAECES DISCOLOURED [None]
